FAERS Safety Report 16611843 (Version 1)
Quarter: 2019Q3

REPORT INFORMATION
  Report Type: Spontaneous
  Country: US (occurrence: US)
  Receive Date: 20190608
  Receipt Date: 20190608
  Transmission Date: 20191004
  Serious: No
  Sender: FDA-Public Use
  Company Number: None

PATIENT
  Age: 48 Year
  Sex: Female

DRUGS (1)
  1. ENBREL [Suspect]
     Active Substance: ETANERCEPT
     Route: 058
     Dates: start: 201801

REACTIONS (7)
  - Decreased appetite [None]
  - Malaise [None]
  - Inflammatory marker increased [None]
  - Therapy non-responder [None]
  - Injection site reaction [None]
  - Rash generalised [None]
  - Rash papular [None]

NARRATIVE: CASE EVENT DATE: 20190607
